FAERS Safety Report 9908516 (Version 1)
Quarter: 2014Q1

REPORT INFORMATION
  Report Type: Spontaneous
  Country: US (occurrence: None)
  Receive Date: 20140214
  Receipt Date: 20140214
  Transmission Date: 20141002
  Serious: Yes (Hospitalization)
  Sender: FDA-Public Use
  Company Number: None

PATIENT
  Age: 77 None
  Sex: Female
  Weight: 91 kg

DRUGS (6)
  1. LANTUS [Suspect]
     Indication: DIABETES MELLITUS
     Dosage: 60 UNITS QAM SQ?CHRONIC
     Route: 058
  2. ASA [Concomitant]
  3. LISINOPRIL [Concomitant]
  4. SIMVASTATIN [Concomitant]
  5. METOPROLOL [Concomitant]
  6. RANITIDINE [Concomitant]

REACTIONS (1)
  - Hypoglycaemia [None]
